FAERS Safety Report 9620969 (Version 8)
Quarter: 2014Q1

REPORT INFORMATION
  Report Type: Report from Study
  Country: US (occurrence: US)
  Receive Date: 20131015
  Receipt Date: 20140103
  Transmission Date: 20141002
  Serious: Yes (Hospitalization, Other)
  Sender: FDA-Public Use
  Company Number: US-VERTEX PHARMACEUTICALS INC-2013-010367

PATIENT
  Age: 62 Year
  Sex: Male
  Weight: 113 kg

DRUGS (6)
  1. VX-950 (TELAPREVIR) [Suspect]
     Indication: HEPATITIS C
     Dosage: 750 MG, TID
     Route: 048
     Dates: start: 20130925, end: 20131120
  2. COPEGUS [Suspect]
     Indication: HEPATITIS C
     Dosage: 600 MG, BID
     Route: 048
     Dates: start: 20130925, end: 20131022
  3. COPEGUS [Suspect]
     Dosage: 400 MG, BID
     Route: 048
     Dates: start: 20131023, end: 20131125
  4. PEGASYS [Suspect]
     Indication: HEPATITIS C
     Dosage: 180 ?G, QW
     Route: 058
     Dates: start: 20130925, end: 20131125
  5. XANAX [Concomitant]
     Indication: ANXIETY
     Dosage: UNK, PRN
     Route: 048
  6. HYDROCODONE [Concomitant]
     Indication: PAIN
     Dosage: UNK, PRN
     Route: 048

REACTIONS (14)
  - Rash generalised [Not Recovered/Not Resolved]
  - Skin exfoliation [Not Recovered/Not Resolved]
  - Hypersomnia [Not Recovered/Not Resolved]
  - Weight increased [Recovered/Resolved]
  - Erectile dysfunction [Not Recovered/Not Resolved]
  - Local swelling [Recovered/Resolved]
  - Formication [Not Recovered/Not Resolved]
  - Skin ulcer [Not Recovered/Not Resolved]
  - Pain of skin [Not Recovered/Not Resolved]
  - Pyrexia [Unknown]
  - Asthenia [Not Recovered/Not Resolved]
  - Red blood cell count decreased [Not Recovered/Not Resolved]
  - Dry skin [Not Recovered/Not Resolved]
  - Pruritus [Unknown]
